FAERS Safety Report 9932435 (Version 1)
Quarter: 2014Q1

REPORT INFORMATION
  Report Type: Spontaneous
  Country: US (occurrence: None)
  Receive Date: 20140227
  Receipt Date: 20140227
  Transmission Date: 20141002
  Serious: Yes (Other)
  Sender: FDA-Public Use
  Company Number: None

PATIENT
  Age: 67 Year
  Sex: Female
  Weight: 131.09 kg

DRUGS (1)
  1. XARELTO [Suspect]
     Indication: THROMBOSIS
     Dates: start: 201309, end: 201312

REACTIONS (1)
  - Vaginal haemorrhage [None]
